FAERS Safety Report 12714168 (Version 2)
Quarter: 2016Q4

REPORT INFORMATION
  Report Type: Spontaneous
  Country: US (occurrence: US)
  Receive Date: 20160905
  Receipt Date: 20161012
  Transmission Date: 20170207
  Serious: No
  Sender: FDA-Public Use
  Company Number: US-PFIZER INC-2016411328

PATIENT
  Sex: Female

DRUGS (7)
  1. METAXALONE. [Suspect]
     Active Substance: METAXALONE
     Dosage: UNK
  2. OMEPRAZOLE. [Suspect]
     Active Substance: OMEPRAZOLE
     Dosage: UNK
  3. RISPERDAL [Suspect]
     Active Substance: RISPERIDONE
     Dosage: UNK
  4. ZYPREXA [Suspect]
     Active Substance: OLANZAPINE
     Dosage: UNK
  5. TRAZODONE [Suspect]
     Active Substance: TRAZODONE HYDROCHLORIDE
     Dosage: UNK
  6. BACLOFEN. [Suspect]
     Active Substance: BACLOFEN
     Dosage: UNK
  7. MELOXICAM. [Suspect]
     Active Substance: MELOXICAM
     Dosage: UNK

REACTIONS (1)
  - Drug hypersensitivity [Unknown]
